FAERS Safety Report 23060699 (Version 1)
Quarter: 2023Q4

REPORT INFORMATION
  Report Type: Spontaneous
  Country: US (occurrence: US)
  Receive Date: 20231012
  Receipt Date: 20231012
  Transmission Date: 20240110
  Serious: Yes (Death)
  Sender: FDA-Public Use
  Company Number: US-PFIZER INC-202200034659

PATIENT
  Age: 90 Year
  Sex: Male
  Weight: 45.351 kg

DRUGS (1)
  1. VYNDAMAX [Suspect]
     Active Substance: TAFAMIDIS
     Indication: Amyloidosis
     Dosage: 61MG, ONE CAPSULE DAILY
     Route: 048

REACTIONS (3)
  - Amyloidosis [Fatal]
  - Disease progression [Fatal]
  - Product prescribing error [Unknown]

NARRATIVE: CASE EVENT DATE: 20220121
